FAERS Safety Report 23396538 (Version 6)
Quarter: 2024Q4

REPORT INFORMATION
  Report Type: Spontaneous
  Country: US (occurrence: US)
  Receive Date: 20240112
  Receipt Date: 20241213
  Transmission Date: 20250115
  Serious: No
  Sender: CSL BEHRING
  Company Number: US-BEH-2024167112

PATIENT
  Age: 53 Year
  Sex: Female

DRUGS (71)
  1. HIZENTRA [Suspect]
     Active Substance: HUMAN IMMUNOGLOBULIN G
     Indication: Immunodeficiency common variable
     Dosage: 14 GRAM, QW
     Route: 058
     Dates: start: 20171024
  2. HIZENTRA [Suspect]
     Active Substance: HUMAN IMMUNOGLOBULIN G
     Dosage: UNK
     Route: 058
     Dates: start: 20230915
  3. HIZENTRA [Suspect]
     Active Substance: HUMAN IMMUNOGLOBULIN G
     Dosage: UNK
     Route: 058
     Dates: start: 20230915
  4. ACYCLOVIR [Concomitant]
     Active Substance: ACYCLOVIR
     Dosage: 800 MG
  5. ALBUTEROL SULFATE [Concomitant]
     Active Substance: ALBUTEROL SULFATE
  6. ALBUTEROL [Concomitant]
     Active Substance: ALBUTEROL
  7. ALBUTEROL [Concomitant]
     Active Substance: ALBUTEROL
     Dosage: 2 MG
  8. ALENDRONATE [Concomitant]
     Active Substance: ALENDRONATE SODIUM
     Dosage: 5 MG
  9. ALENDRONATE [Concomitant]
     Active Substance: ALENDRONATE SODIUM
     Dosage: 70 MG
  10. ATORVASTATIN [Concomitant]
     Active Substance: ATORVASTATIN
     Dosage: 10 MG
  11. ATORVASTATIN [Concomitant]
     Active Substance: ATORVASTATIN
     Dosage: 40 MG
  12. AZITHROMYCIN [Concomitant]
     Active Substance: AZITHROMYCIN
     Dosage: 250 MG
  13. BENZONATATE [Concomitant]
     Active Substance: BENZONATATE
     Dosage: 100 MG
  14. BUDESONIDE\FORMOTEROL [Concomitant]
     Active Substance: BUDESONIDE\FORMOTEROL
  15. CIMETIDINE [Concomitant]
     Active Substance: CIMETIDINE
     Dosage: 300 MG
  16. CYCLOBENZAPRINE [Concomitant]
     Active Substance: CYCLOBENZAPRINE
     Dosage: 10 MG
  17. DICLOFENAC [Concomitant]
     Active Substance: DICLOFENAC
  18. DOCUSATE SODIUM [Concomitant]
     Active Substance: DOCUSATE SODIUM
     Dosage: 100 MG
  19. DOXAZOSIN [Concomitant]
     Active Substance: DOXAZOSIN\DOXAZOSIN MESYLATE
     Dosage: 4 MG
  20. DULOXETINE [Concomitant]
     Active Substance: DULOXETINE
     Dosage: 20 MG
  21. DULOXETINE [Concomitant]
     Active Substance: DULOXETINE
     Dosage: 60 MG
  22. EPINEPHRINE [Concomitant]
     Active Substance: EPINEPHRINE
     Dosage: 0.3 MG
  23. FLUTICASONE [Concomitant]
     Active Substance: FLUTICASONE
     Dosage: 50 MCG
  24. FUROSEMIDE [Concomitant]
     Active Substance: FUROSEMIDE
     Dosage: 40 MG
  25. GABAPENTIN [Concomitant]
     Active Substance: GABAPENTIN
     Dosage: 300 MG
  26. GABAPENTIN [Concomitant]
     Active Substance: GABAPENTIN
     Dosage: 600 MG
  27. HYDROCODONE BITARTRATE AND ACETAMINOPHEN [Concomitant]
     Active Substance: ACETAMINOPHEN\HYDROCODONE BITARTRATE
  28. HYDROCORT [HYDROCORTISONE] [Concomitant]
     Dosage: 20 MG
  29. HYDROXYZINE HYDROCHLORIDE [Concomitant]
     Active Substance: HYDROXYZINE HYDROCHLORIDE
     Dosage: 10 MG
  30. IBUPROFEN [Concomitant]
     Active Substance: IBUPROFEN
     Dosage: 200 MG
  31. IBUPROFEN [Concomitant]
     Active Substance: IBUPROFEN
     Dosage: 800 UNK
  32. KEPPRA [Concomitant]
     Active Substance: LEVETIRACETAM
     Dosage: 1000 MG
  33. KLOR-CON M10 [Concomitant]
     Active Substance: POTASSIUM CHLORIDE
  34. LASIX [Concomitant]
     Active Substance: FUROSEMIDE
     Dosage: 40 MG
  35. LATUDA [Concomitant]
     Active Substance: LURASIDONE HYDROCHLORIDE
     Dosage: 120 MG
  36. LATUDA [Concomitant]
     Active Substance: LURASIDONE HYDROCHLORIDE
     Dosage: 40 MG
  37. LATUDA [Concomitant]
     Active Substance: LURASIDONE HYDROCHLORIDE
     Dosage: 80 MG
  38. LEVETIRACETAM [Concomitant]
     Active Substance: LEVETIRACETAM
     Dosage: 750 MG
  39. LIDOCAINE AND PRILOCAINE [Concomitant]
     Active Substance: LIDOCAINE\PRILOCAINE
  40. LORATADINE [Concomitant]
     Active Substance: LORATADINE
     Dosage: 10 MG
  41. MEDROXYPROGESTERONE ACETATE [Concomitant]
     Active Substance: MEDROXYPROGESTERONE ACETATE
     Dosage: 5 MG
  42. METHOCARBAMOL [Concomitant]
     Active Substance: METHOCARBAMOL
     Dosage: 750 MG
  43. MUCINEX [Concomitant]
     Active Substance: GUAIFENESIN
     Dosage: 600 MG
  44. MULTIVITAMIN ACTIVE WOMAN [Concomitant]
  45. NAPROXEN [Concomitant]
     Active Substance: NAPROXEN
     Dosage: 500 MG
  46. NICOTINE POLACRILEX [Concomitant]
     Active Substance: NICOTINE
     Dosage: 2 MG
  47. OMEPRAZOLE [Concomitant]
     Active Substance: OMEPRAZOLE
     Dosage: 20 MG
  48. OYSTER SHELL [Concomitant]
     Active Substance: OSTREA EDULIS SHELL
     Dosage: 500 MG
  49. PAXLOVID [Concomitant]
     Active Substance: NIRMATRELVIR\RITONAVIR
  50. POLYETHYLENE GLYCOLS [Concomitant]
     Active Substance: POLYETHYLENE GLYCOLS
  51. POTASSIUM CHLORIDE [Concomitant]
     Active Substance: POTASSIUM CHLORIDE
  52. PRAZOSIN HYDROCHLORIDE [Concomitant]
     Active Substance: PRAZOSIN HYDROCHLORIDE
     Dosage: 2 MG
  53. PRAZOSIN HYDROCHLORIDE [Concomitant]
     Active Substance: PRAZOSIN HYDROCHLORIDE
     Dosage: 5 MG
  54. PREDNISONE [Concomitant]
     Active Substance: PREDNISONE
     Dosage: 1 MG
  55. PREDNISONE [Concomitant]
     Active Substance: PREDNISONE
     Dosage: 20 MG
  56. PREDNISONE [Concomitant]
     Active Substance: PREDNISONE
     Dosage: 5 MG
  57. PROMETHAZINE [Concomitant]
     Active Substance: PROMETHAZINE HYDROCHLORIDE
  58. PROMETHAZINE [Concomitant]
     Active Substance: PROMETHAZINE HYDROCHLORIDE
     Dosage: 25 MG
  59. QVAR REDIHALER [Concomitant]
     Active Substance: BECLOMETHASONE DIPROPIONATE
     Dosage: 80 MCG
  60. RANITIDINE [Concomitant]
     Active Substance: RANITIDINE
     Dosage: 150 MG
  61. SOLU-CORTEF [Concomitant]
     Active Substance: HYDROCORTISONE SODIUM SUCCINATE
     Dosage: 100 MG
  62. SUMATRIPTAN [Concomitant]
     Active Substance: SUMATRIPTAN
     Dosage: 50 MG
  63. SUPREP BOWEL PREP [Concomitant]
     Active Substance: MAGNESIUM SULFATE\POTASSIUM SULFATE\SODIUM SULFATE
  64. SYMBICORT [Concomitant]
     Active Substance: BUDESONIDE\FORMOTEROL FUMARATE DIHYDRATE
  65. TRAZODONE [Concomitant]
     Active Substance: TRAZODONE HYDROCHLORIDE
     Dosage: 150 MG
  66. TRAZODONE [Concomitant]
     Active Substance: TRAZODONE HYDROCHLORIDE
     Dosage: 50 MG
  67. VALACYCLOVIR [Concomitant]
     Active Substance: VALACYCLOVIR HYDROCHLORIDE
     Dosage: 500 MG
  68. CHOLECALCIFEROL [Concomitant]
     Active Substance: CHOLECALCIFEROL
     Dosage: 2000 IU
  69. CHOLECALCIFEROL [Concomitant]
     Active Substance: CHOLECALCIFEROL
     Dosage: 50 MCG
  70. VITAMIN D3 [Concomitant]
     Active Substance: CHOLECALCIFEROL
     Dosage: 50 MCG
  71. ZOFRAN [Concomitant]
     Active Substance: ONDANSETRON HYDROCHLORIDE
     Dosage: 4 MG

REACTIONS (6)
  - Nausea [Unknown]
  - Vomiting [Unknown]
  - General physical health deterioration [Unknown]
  - Incorrect dose administered [Unknown]
  - Therapy interrupted [Unknown]
  - Illness [Unknown]

NARRATIVE: CASE EVENT DATE: 20240401
